FAERS Safety Report 8013283-6 (Version None)
Quarter: 2011Q4

REPORT INFORMATION
  Report Type: 
  Country: None (occurrence: None)
  Receive Date: 20111229
  Receipt Date: 20111228
  Transmission Date: 20120403
  Serious: Yes (Life-Threatening)
  Sender: FDA-Public Use
  Company Number: IT-BAYER-2011-124061

PATIENT
  Sex: Male

DRUGS (1)
  1. VARDENAFIL HYDROCHLORIDE (LEVITRA) [Suspect]

REACTIONS (1)
  - SEIZURE LIKE PHENOMENA [None]
